FAERS Safety Report 6548843-2 (Version None)
Quarter: 2010Q1

REPORT INFORMATION
  Report Type: 
  Country: None (occurrence: None)
  Receive Date: 20100124
  Receipt Date: 20091217
  Transmission Date: 20100710
  Serious: No
  Sender: FDA-Public Use
  Company Number: US-ALLERGAN-0917287US

PATIENT
  Age: 73 Year
  Sex: Female

DRUGS (5)
  1. RESTASIS [Suspect]
     Indication: DRY EYE
     Dosage: UNK
     Route: 047
  2. LISINOPRIL/HYDROCHLOORTHIAZIDE [Concomitant]
     Indication: HYPERTENSION
  3. LIPITOR [Concomitant]
     Indication: BLOOD CHOLESTEROL INCREASED
  4. REFRESH CLASSIC [Concomitant]
     Indication: DRY EYE
     Route: 047
  5. CELEBREX [Concomitant]

REACTIONS (2)
  - COUGH [None]
  - PARANASAL SINUS HYPERSECRETION [None]
